FAERS Safety Report 16274610 (Version 1)
Quarter: 2019Q2

REPORT INFORMATION
  Report Type: Spontaneous
  Country: US (occurrence: US)
  Receive Date: 20190401
  Receipt Date: 20190401
  Transmission Date: 20190711
  Serious: Yes (Life-Threatening, Other)
  Sender: FDA-Public Use
  Company Number: None

PATIENT
  Age: 55 Year
  Weight: 107.05 kg

DRUGS (1)
  1. LOSARTAN POTASSIUM. [Suspect]
     Active Substance: LOSARTAN POTASSIUM
     Indication: HYPERTENSION
     Dates: start: 20181212

REACTIONS (14)
  - Swelling face [None]
  - Rash [None]
  - Dyspnoea [None]
  - Blood pressure increased [None]
  - Dysuria [None]
  - Dizziness [None]
  - Abdominal distension [None]
  - Nasopharyngitis [None]
  - Eye irritation [None]
  - Lethargy [None]
  - Headache [None]
  - Joint swelling [None]
  - Chromaturia [None]
  - Product quality issue [None]

NARRATIVE: CASE EVENT DATE: 20181212
